FAERS Safety Report 12483510 (Version 1)
Quarter: 2016Q2

REPORT INFORMATION
  Report Type: Spontaneous
  Country: US (occurrence: US)
  Receive Date: 20160621
  Receipt Date: 20160621
  Transmission Date: 20160815
  Serious: Yes (Other)
  Sender: FDA-Public Use
  Company Number: US-BRISTOL-MYERS SQUIBB COMPANY-BMS-2016-046184

PATIENT
  Age: 80 Year
  Sex: Male
  Weight: 93 kg

DRUGS (4)
  1. TYVASO [Suspect]
     Active Substance: TREPROSTINIL
     Dosage: UNK
     Route: 065
  2. TYVASO [Suspect]
     Active Substance: TREPROSTINIL
     Dosage: UNK
     Route: 065
  3. TYVASO [Suspect]
     Active Substance: TREPROSTINIL
     Indication: PULMONARY ARTERIAL HYPERTENSION
     Dosage: 18 ?G, QID
     Route: 065
     Dates: start: 20160128
  4. COUMADIN [Suspect]
     Active Substance: WARFARIN SODIUM
     Indication: PRODUCT USED FOR UNKNOWN INDICATION
     Dosage: UNK
     Route: 065

REACTIONS (13)
  - Throat irritation [Unknown]
  - Thirst [Unknown]
  - Dizziness [Unknown]
  - Dyspnoea exertional [Not Recovered/Not Resolved]
  - Flushing [Unknown]
  - Dysphonia [Unknown]
  - Hypoxia [Unknown]
  - Dyspnoea [Not Recovered/Not Resolved]
  - Somnolence [Unknown]
  - Cough [Unknown]
  - No therapeutic response [Unknown]
  - Chest pain [Unknown]
  - Epistaxis [Unknown]

NARRATIVE: CASE EVENT DATE: 201602
